FAERS Safety Report 6487264-8 (Version None)
Quarter: 2009Q4

REPORT INFORMATION
  Report Type: 
  Country: None (occurrence: None)
  Receive Date: 20091210
  Receipt Date: 20091204
  Transmission Date: 20100525
  Serious: Yes (Hospitalization)
  Sender: FDA-Public Use
  Company Number: US-JNJFOC-20091202446

PATIENT
  Age: 30 Year
  Sex: Female

DRUGS (1)
  1. ORTHOCLONE OKT3 [Suspect]
     Indication: AUTOIMMUNE DISORDER
     Route: 065

REACTIONS (4)
  - DIARRHOEA [None]
  - INFUSION RELATED REACTION [None]
  - TREMOR [None]
  - VOMITING [None]
